FAERS Safety Report 4279234-5 (Version None)
Quarter: 2004Q1

REPORT INFORMATION
  Report Type: 
  Country: None (occurrence: None)
  Receive Date: 20040126
  Receipt Date: 20040126
  Transmission Date: 20041129
  Serious: Yes (Other)
  Sender: FDA-Public Use
  Company Number: None

PATIENT
  Age: 58 Year
  Sex: Female

DRUGS (8)
  1. METFORMIN HCL [Suspect]
     Indication: DIABETES MELLITUS
     Dosage: 1 BID
     Dates: start: 20031101, end: 20040112
  2. LANTUS [Concomitant]
  3. LOTENSIN HCT [Concomitant]
  4. PREMARIN [Concomitant]
  5. NORVASC [Concomitant]
  6. GUANFACINE HCL [Concomitant]
  7. ACTOS [Concomitant]
  8. AMARYL [Concomitant]

REACTIONS (3)
  - BLOOD GLUCOSE INCREASED [None]
  - DIABETES MELLITUS INADEQUATE CONTROL [None]
  - PHARMACEUTICAL PRODUCT COMPLAINT [None]
